FAERS Safety Report 21393630 (Version 1)
Quarter: 2022Q3

REPORT INFORMATION
  Report Type: Report from Study
  Country: DE (occurrence: DE)
  Receive Date: 20220929
  Receipt Date: 20220929
  Transmission Date: 20221026
  Serious: Yes (Other)
  Sender: FDA-Public Use
  Company Number: DE-AMGEN-DEUSL2022118737

PATIENT
  Age: 69 Year
  Sex: Male

DRUGS (3)
  1. BLINCYTO [Suspect]
     Active Substance: BLINATUMOMAB
     Indication: B precursor type acute leukaemia
     Dosage: 28 MICROGRAM, QD
     Route: 065
     Dates: start: 20220616, end: 20220815
  2. BLINCYTO [Suspect]
     Active Substance: BLINATUMOMAB
     Dosage: 28 MICROGRAM, QD
     Route: 065
     Dates: start: 20220728, end: 20220824
  3. BLINCYTO [Suspect]
     Active Substance: BLINATUMOMAB
     Dosage: 28 MICROGRAM, QD
     Route: 065

REACTIONS (14)
  - Nausea [Recovered/Resolved]
  - Dizziness [Recovered/Resolved]
  - Somnolence [Unknown]
  - Gait disturbance [Unknown]
  - Asthenia [Unknown]
  - Diarrhoea [Unknown]
  - Vomiting [Unknown]
  - Blood pressure increased [Unknown]
  - Rash [Unknown]
  - Pyrexia [Recovered/Resolved]
  - Catheter site erythema [Unknown]
  - Catheter site discharge [Unknown]
  - Device power source issue [Unknown]
  - Product administration interrupted [Unknown]

NARRATIVE: CASE EVENT DATE: 20220101
